FAERS Safety Report 6314615-7 (Version None)
Quarter: 2009Q3

REPORT INFORMATION
  Report Type: 
  Country: None (occurrence: None)
  Receive Date: 20090817
  Receipt Date: 20090817
  Transmission Date: 20100115
  Serious: No
  Sender: FDA-Public Use
  Company Number: None

PATIENT
  Age: 71 Year
  Sex: Female
  Weight: 62.1428 kg

DRUGS (3)
  1. NYSTATIN [Suspect]
     Indication: OESOPHAGEAL CANDIDIASIS
     Dosage: 15ML Q.I.D. AND HS 047
     Route: 048
     Dates: start: 20090730, end: 20090801
  2. PREVACID [Concomitant]
  3. AMOXICILLIN [Concomitant]

REACTIONS (7)
  - DYSGEUSIA [None]
  - GLOSSODYNIA [None]
  - OESOPHAGEAL PAIN [None]
  - PARAESTHESIA ORAL [None]
  - PRODUCT TASTE ABNORMAL [None]
  - SKIN EXFOLIATION [None]
  - THROAT IRRITATION [None]
